FAERS Safety Report 18160903 (Version 1)
Quarter: 2020Q3

REPORT INFORMATION
  Report Type: Spontaneous
  Country: US (occurrence: US)
  Receive Date: 20200818
  Receipt Date: 20200818
  Transmission Date: 20201103
  Serious: Yes (Other)
  Sender: FDA-Public Use
  Company Number: US-ROCHE-2658554

PATIENT
  Sex: Male

DRUGS (1)
  1. OCREVUS [Suspect]
     Active Substance: OCRELIZUMAB
     Indication: PRODUCT USED FOR UNKNOWN INDICATION
     Route: 065

REACTIONS (7)
  - Oscillopsia [Unknown]
  - Diplopia [Unknown]
  - Memory impairment [Unknown]
  - Neurogenic bladder [Unknown]
  - Ataxia [Unknown]
  - Cerebellar ataxia [Unknown]
  - Intention tremor [Unknown]
